FAERS Safety Report 8914267 (Version 1)
Quarter: 2012Q4

REPORT INFORMATION
  Report Type: Report from Study
  Country: BR (occurrence: BR)
  Receive Date: 20121119
  Receipt Date: 20121119
  Transmission Date: 20130627
  Serious: Yes (Hospitalization)
  Sender: FDA-Public Use
  Company Number: BR-ABBOTT-12P-020-1007202-00

PATIENT
  Sex: Female
  Weight: 52 kg

DRUGS (1)
  1. HUMIRA [Suspect]
     Indication: RHEUMATOID ARTHRITIS
     Route: 058
     Dates: start: 20070101

REACTIONS (4)
  - Hospitalisation [Unknown]
  - Hypertension [Recovered/Resolved with Sequelae]
  - Dyspnoea [Recovering/Resolving]
  - Injection site nodule [Recovering/Resolving]
